FAERS Safety Report 8816738 (Version 2)
Quarter: 2012Q4

REPORT INFORMATION
  Report Type: Spontaneous
  Country: US (occurrence: None)
  Receive Date: 20121001
  Receipt Date: 20121004
  Transmission Date: 20130627
  Serious: Yes (Hospitalization)
  Sender: FDA-Public Use
  Company Number: JPI-P-025331

PATIENT
  Age: 24 Year
  Sex: Female

DRUGS (5)
  1. XYREM (500 MILLIGRAM/ MILLILITERS, SOLUTION) (SODIUM OXYBATE) [Suspect]
     Indication: NARCOLEPSY
     Dosage: 4.5 gm (2.25 gm,2 in 1 D),Oral
     Route: 048
     Dates: start: 20110929
  2. XYREM (500 MILLIGRAM/ MILLILITERS, SOLUTION) (SODIUM OXYBATE) [Suspect]
     Indication: NARCOLEPSY
     Route: 048
  3. XYREM (500 MILLIGRAM/ MILLILITERS, SOLUTION) (SODIUM OXYBATE) [Suspect]
     Indication: NARCOLEPSY
     Dosage: 9 gm (4.5 gm,2 in 1 D),Oral
     Route: 048
  4. FLUTICASONE PROPIONATE [Concomitant]
  5. ETHINYLESTRADIOL W/NORELGESTROMIN (ORTHO EVRA) [Concomitant]

REACTIONS (13)
  - Eating disorder [None]
  - Muscle spasms [None]
  - Anxiety [None]
  - Abdominal pain lower [None]
  - Hunger [None]
  - Tremor [None]
  - Palpitations [None]
  - Panic attack [None]
  - Headache [None]
  - Nausea [None]
  - Retching [None]
  - Confusional state [None]
  - Nervousness [None]
